FAERS Safety Report 5015914-1 (Version None)
Quarter: 2006Q2

REPORT INFORMATION
  Report Type: 
  Country: None (occurrence: None)
  Receive Date: 20060425
  Receipt Date: 20060204
  Transmission Date: 20061013
  Serious: Yes (Other)
  Sender: FDA-Public Use
  Company Number: 219621

PATIENT
  Age: 13 Year
  Sex: Female

DRUGS (2)
  1. XOLAIR [Suspect]
     Dates: start: 20040501, end: 20041201
  2. XOLAIR [Suspect]
     Dates: start: 20050201

REACTIONS (1)
  - HODGKIN'S DISEASE [None]
